FAERS Safety Report 18625762 (Version 1)
Quarter: 2020Q4

REPORT INFORMATION
  Report Type: Spontaneous
  Country: US (occurrence: US)
  Receive Date: 20201217
  Receipt Date: 20201217
  Transmission Date: 20210114
  Serious: Yes (Life-Threatening, Hospitalization, Other)
  Sender: FDA-Public Use
  Company Number: US-DRREDDYS-USA/USA/20/0130083

PATIENT
  Age: 7 Year
  Sex: Female
  Weight: 30 kg

DRUGS (5)
  1. HEPARIN SODIUM. [Suspect]
     Active Substance: HEPARIN SODIUM
     Indication: ANTICOAGULANT THERAPY
  2. OXYGEN. [Concomitant]
     Active Substance: OXYGEN
  3. OXYGEN. [Concomitant]
     Active Substance: OXYGEN
     Indication: LUNG ASSIST DEVICE THERAPY
     Dosage: CENTRIMAG FLOW
  4. FLUCONAZOLE. [Concomitant]
     Active Substance: FLUCONAZOLE
     Indication: PROPHYLAXIS
  5. OXYGEN. [Concomitant]
     Active Substance: OXYGEN

REACTIONS (4)
  - Thrombocytopenia [Recovered/Resolved]
  - Conjunctival haemorrhage [Unknown]
  - Coagulopathy [Recovered/Resolved]
  - Haemorrhage subcutaneous [Unknown]
